FAERS Safety Report 14845773 (Version 3)
Quarter: 2019Q1

REPORT INFORMATION
  Report Type: Spontaneous
  Country: US (occurrence: US)
  Receive Date: 20180504
  Receipt Date: 20190116
  Transmission Date: 20190417
  Serious: Yes (Other)
  Sender: FDA-Public Use
  Company Number: US-JNJFOC-20180435092

PATIENT
  Sex: Male
  Weight: 57.61 kg

DRUGS (1)
  1. ZYTIGA [Suspect]
     Active Substance: ABIRATERONE ACETATE
     Indication: PROSTATE CANCER
     Route: 048
     Dates: start: 201603, end: 201801

REACTIONS (2)
  - Therapeutic response decreased [Unknown]
  - Prostatic specific antigen increased [Unknown]
